FAERS Safety Report 16976572 (Version 1)
Quarter: 2019Q4

REPORT INFORMATION
  Report Type: Spontaneous
  Country: US (occurrence: US)
  Receive Date: 20190914
  Receipt Date: 20190914
  Transmission Date: 20200122
  Serious: Yes (Death)
  Sender: FDA-Public Use
  Company Number: None

PATIENT
  Sex: Female

DRUGS (1)
  1. SILDENAFIL 20MG [Suspect]
     Active Substance: SILDENAFIL
     Route: 048
     Dates: start: 20180214

REACTIONS (1)
  - Death [None]
